FAERS Safety Report 6342859-7 (Version None)
Quarter: 2009Q3

REPORT INFORMATION
  Report Type: 
  Country: None (occurrence: None)
  Receive Date: 20090908
  Receipt Date: 20090827
  Transmission Date: 20100115
  Serious: Yes (Other)
  Sender: FDA-Public Use
  Company Number: US-JNJFOC-20090900299

PATIENT
  Age: 48 Year
  Sex: Female

DRUGS (2)
  1. TAPENTADOL HYDROCHLORIDE [Suspect]
     Indication: FIBROMYALGIA
     Route: 048
  2. UNKNOWN MEDICATION [Concomitant]

REACTIONS (2)
  - ALOPECIA [None]
  - OBSESSIVE-COMPULSIVE DISORDER [None]
